FAERS Safety Report 14360666 (Version 7)
Quarter: 2018Q4

REPORT INFORMATION
  Report Type: Spontaneous
  Country: FR (occurrence: FR)
  Receive Date: 20180106
  Receipt Date: 20181024
  Transmission Date: 20190204
  Serious: Yes (Other)
  Sender: FDA-Public Use
  Company Number: FR-MYLANLABS-2018M1000939

PATIENT
  Age: 68 Year
  Sex: Male

DRUGS (22)
  1. OXALIPLATIN. [Suspect]
     Active Substance: OXALIPLATIN
     Indication: STEM CELL TRANSPLANT
     Dosage: UNK, CYCLE,AS A PART OF R-DHAOX REGIMEN
     Route: 065
  2. DEXAMETHASONE. [Suspect]
     Active Substance: DEXAMETHASONE
     Indication: STEM CELL TRANSPLANT
     Dosage: UNK, CYCLE,AS A PART OF R-DHAOX REGIMEN
     Route: 065
  3. CYTARABINE. [Suspect]
     Active Substance: CYTARABINE
     Indication: IMMUNOSUPPRESSANT DRUG THERAPY
  4. RITUXIMAB. [Suspect]
     Active Substance: RITUXIMAB
     Indication: IMMUNOSUPPRESSANT DRUG THERAPY
     Dosage: UNK, CYCLE,AS A PART OF R-DHAOX REGIMEN
     Route: 065
  5. VEPESIDE [Suspect]
     Active Substance: ETOPOSIDE
     Indication: BONE MARROW CONDITIONING REGIMEN
     Dosage: UNK
  6. DEXAMETHASONE. [Suspect]
     Active Substance: DEXAMETHASONE
     Indication: MANTLE CELL LYMPHOMA
  7. ETOPOSIDE. [Suspect]
     Active Substance: ETOPOSIDE
     Indication: BONE MARROW CONDITIONING REGIMEN
     Dosage: UNK, CYCLE,AS A PART OF BEAM REGIMEN
     Route: 065
  8. ETOPOSIDE. [Suspect]
     Active Substance: ETOPOSIDE
     Indication: MANTLE CELL LYMPHOMA
  9. CYTARABINE. [Suspect]
     Active Substance: CYTARABINE
     Indication: STEM CELL TRANSPLANT
     Dosage: UNK, CYCLE, AS A PART OF R-DHAOX AND BEAM REGIMEN
     Route: 065
  10. MELPHALAN. [Suspect]
     Active Substance: MELPHALAN
     Indication: BONE MARROW CONDITIONING REGIMEN
     Dosage: UNK, CYCLE,AS A PART OF BEAM REGIMEN
     Route: 065
  11. CARMUSTINE. [Suspect]
     Active Substance: CARMUSTINE
     Indication: BONE MARROW CONDITIONING REGIMEN
     Dosage: UNK, CYCLE,AS A PART OF BEAM REGIMEN
     Route: 065
  12. OXALIPLATIN. [Suspect]
     Active Substance: OXALIPLATIN
     Indication: IMMUNOSUPPRESSANT DRUG THERAPY
  13. OXALIPLATIN. [Suspect]
     Active Substance: OXALIPLATIN
     Indication: MANTLE CELL LYMPHOMA
  14. CYTARABINE. [Suspect]
     Active Substance: CYTARABINE
     Indication: MANTLE CELL LYMPHOMA
  15. RITUXIMAB. [Suspect]
     Active Substance: RITUXIMAB
     Indication: MANTLE CELL LYMPHOMA
  16. MEROPENEM. [Concomitant]
     Active Substance: MEROPENEM
     Indication: FEBRILE NEUTROPENIA
     Dosage: UNK
  17. DEXAMETHASONE. [Suspect]
     Active Substance: DEXAMETHASONE
     Indication: IMMUNOSUPPRESSANT DRUG THERAPY
  18. MELPHALAN. [Suspect]
     Active Substance: MELPHALAN
     Indication: MANTLE CELL LYMPHOMA
  19. RITUXIMAB. [Suspect]
     Active Substance: RITUXIMAB
     Indication: STEM CELL TRANSPLANT
  20. VANCOMYCIN [Concomitant]
     Active Substance: VANCOMYCIN
     Indication: PRODUCT USED FOR UNKNOWN INDICATION
  21. CARMUSTINE. [Suspect]
     Active Substance: CARMUSTINE
     Indication: MANTLE CELL LYMPHOMA
  22. VEPESIDE [Suspect]
     Active Substance: ETOPOSIDE
     Indication: MANTLE CELL LYMPHOMA
     Dosage: UNK UNK, CYCLE
     Route: 065

REACTIONS (6)
  - Toxicity to various agents [Recovered/Resolved]
  - Hepatitis acute [Unknown]
  - Abdominal pain [Unknown]
  - Febrile neutropenia [Recovered/Resolved]
  - Weight increased [Unknown]
  - Venoocclusive liver disease [Recovered/Resolved]
